FAERS Safety Report 5257273-5 (Version None)
Quarter: 2007Q1

REPORT INFORMATION
  Report Type: 
  Country: None (occurrence: None)
  Receive Date: 20070307
  Receipt Date: 20070228
  Transmission Date: 20070707
  Serious: Yes (Hospitalization)
  Sender: FDA-Public Use
  Company Number: 2006UW07695

PATIENT
  Age: 42 Year
  Sex: Female
  Weight: 81.8 kg

DRUGS (4)
  1. SEROQUEL [Suspect]
     Indication: DEPRESSION
     Dosage: 100 MG TO 500 MG
     Route: 048
     Dates: start: 19970101, end: 20040101
  2. HALDOL [Concomitant]
  3. RISPERDAL [Concomitant]
  4. OLANZAPINE [Concomitant]

REACTIONS (2)
  - DEPRESSION [None]
  - DIABETES MELLITUS NON-INSULIN-DEPENDENT [None]
